FAERS Safety Report 7380871-X (Version None)
Quarter: 2011Q1

REPORT INFORMATION
  Report Type: 
  Country: None (occurrence: None)
  Receive Date: 20110329
  Receipt Date: 20110315
  Transmission Date: 20110831
  Serious: Yes (Hospitalization, Other)
  Sender: FDA-Public Use
  Company Number: PHHO2011DE01428

PATIENT
  Sex: Male

DRUGS (9)
  1. MYFORTIC [Suspect]
     Indication: RENAL TRANSPLANT
     Dosage: 1440 MG, BID
     Route: 048
     Dates: start: 20091228, end: 20110105
  2. NO TREATMENT RECEIVED [Suspect]
     Indication: RENAL TRANSPLANT
     Dosage: NO TREATMENT
  3. SANDIMMUNE [Suspect]
     Indication: RENAL TRANSPLANT
     Dosage: 350 MG, BID
     Route: 048
     Dates: start: 20091228, end: 20091228
  4. SANDIMMUNE [Suspect]
     Dosage: UNK
     Route: 048
     Dates: end: 20110124
  5. MYFORTIC [Suspect]
     Dosage: UNK
     Route: 048
     Dates: end: 20110124
  6. URBASON [Concomitant]
     Indication: RENAL TRANSPLANT
     Dosage: 250 MG, BID
     Route: 048
     Dates: start: 20091228, end: 20091228
  7. URBASON [Concomitant]
     Dosage: UNK
     Route: 048
     Dates: end: 20110124
  8. SANDIMMUNE [Suspect]
     Dosage: 150 MG, BID
     Route: 048
     Dates: start: 20100701, end: 20110105
  9. URBASON [Concomitant]
     Dosage: 8 MG, BID
     Route: 048
     Dates: start: 20100429, end: 20110105

REACTIONS (5)
  - CEREBROVASCULAR ACCIDENT [None]
  - FALL [None]
  - RENAL NEOPLASM [None]
  - MONOPLEGIA [None]
  - B-CELL LYMPHOMA [None]
